FAERS Safety Report 6975986-1 (Version None)
Quarter: 2010Q3

REPORT INFORMATION
  Report Type: 
  Country: None (occurrence: None)
  Receive Date: 20100910
  Receipt Date: 20090406
  Transmission Date: 20110219
  Serious: No
  Sender: FDA-Public Use
  Company Number: US-WYE-H08846009

PATIENT
  Sex: Female
  Weight: 113.5 kg

DRUGS (3)
  1. PRISTIQ [Suspect]
     Indication: DEPRESSION
     Route: 048
     Dates: start: 20090202
  2. STRATTERA [Concomitant]
  3. LAMICTAL [Concomitant]

REACTIONS (2)
  - HYPERTENSION [None]
  - NAUSEA [None]
